FAERS Safety Report 9014183 (Version 2)
Quarter: 2013Q1

REPORT INFORMATION
  Report Type: Spontaneous
  Country: KR (occurrence: KR)
  Receive Date: 20130115
  Receipt Date: 20130226
  Transmission Date: 20140127
  Serious: Yes (Hospitalization)
  Sender: FDA-Public Use
  Company Number: PHHY2013KR002665

PATIENT
  Age: 6 Month
  Sex: Female

DRUGS (4)
  1. VANCOMYCIN [Suspect]
     Indication: ANTIBIOTIC PROPHYLAXIS
     Route: 042
  2. CEFOTAXIME [Suspect]
     Indication: ANTIBIOTIC PROPHYLAXIS
     Route: 042
  3. ISONIAZID [Suspect]
     Indication: TUBERCULOSIS
  4. RIFAMPICIN [Suspect]
     Indication: TUBERCULOSIS

REACTIONS (9)
  - Paradoxical drug reaction [Recovering/Resolving]
  - Pyrexia [Recovering/Resolving]
  - Lymphadenopathy [Recovering/Resolving]
  - Rash papular [Recovering/Resolving]
  - Skin lesion [Recovering/Resolving]
  - Lung infiltration [Recovering/Resolving]
  - Skin mass [Recovering/Resolving]
  - Bovine tuberculosis [Recovering/Resolving]
  - Leukopenia [Recovering/Resolving]
